FAERS Safety Report 6396696-8 (Version None)
Quarter: 2009Q4

REPORT INFORMATION
  Report Type: 
  Country: None (occurrence: None)
  Receive Date: 20091012
  Receipt Date: 20090918
  Transmission Date: 20100525
  Serious: Yes (Other)
  Sender: FDA-Public Use
  Company Number: JP-PFIZER INC-2009257826

PATIENT
  Age: 77 Year

DRUGS (14)
  1. ZITHROMAC SR [Suspect]
     Indication: ASTHMA
     Dosage: 2 G, 1X/DAY
     Route: 048
     Dates: start: 20090815, end: 20090815
  2. DAONIL [Interacting]
     Dosage: UNK
     Route: 048
     Dates: end: 20090818
  3. MONTELUKAST SODIUM [Concomitant]
     Dosage: UNK
     Route: 048
  4. THEOPHYLLINE [Concomitant]
     Dosage: UNK
     Route: 048
  5. ADALAT CC [Concomitant]
     Dosage: UNK
     Route: 048
  6. OLMETEC [Concomitant]
     Dosage: UNK
     Route: 048
  7. TAKEPRON [Concomitant]
     Dosage: UNK
     Route: 048
  8. HOKUNALIN [Concomitant]
     Dosage: UNK
     Route: 058
  9. AMBROXOL HYDROCHLORIDE [Concomitant]
     Dosage: UNK
     Route: 048
  10. PARIET [Concomitant]
     Dosage: UNK
     Route: 048
  11. ANPLAG [Concomitant]
     Dosage: UNK
     Route: 048
  12. MAGNESIUM OXIDE [Concomitant]
     Dosage: UNK
     Route: 048
  13. VERAPAMIL HCL [Concomitant]
     Dosage: UNK
     Route: 048
  14. ALLELOCK [Concomitant]
     Dosage: UNK
     Route: 048

REACTIONS (1)
  - HYPOGLYCAEMIA [None]
